FAERS Safety Report 4294257-8 (Version None)
Quarter: 2004Q1

REPORT INFORMATION
  Report Type: 
  Country: None (occurrence: None)
  Receive Date: 20040211
  Receipt Date: 20030725
  Transmission Date: 20041129
  Serious: No
  Sender: FDA-Public Use
  Company Number: US-GLAXOSMITHKLINE-A0418950A

PATIENT
  Age: 49 Year
  Sex: Male

DRUGS (1)
  1. LAMICTAL [Suspect]
     Route: 048

REACTIONS (6)
  - DERMATITIS EXFOLIATIVE [None]
  - NERVOUSNESS [None]
  - PALPITATIONS [None]
  - PERIPHERAL COLDNESS [None]
  - RASH [None]
  - TREMOR [None]
